FAERS Safety Report 4428736-7 (Version None)
Quarter: 2004Q3

REPORT INFORMATION
  Report Type: 
  Country: None (occurrence: None)
  Receive Date: 20040818
  Receipt Date: 20040317
  Transmission Date: 20050211
  Serious: Yes (Hospitalization, Other)
  Sender: FDA-Public Use
  Company Number: US-BRISTOL-MYERS SQUIBB COMPANY-12536041

PATIENT
  Age: 63 Year
  Sex: Female

DRUGS (9)
  1. TEQUIN [Suspect]
     Indication: SINUSITIS
     Route: 048
     Dates: start: 20031117, end: 20031117
  2. CELEXA [Concomitant]
  3. PROVERA [Concomitant]
  4. LIPITOR [Concomitant]
  5. TRAZODONE HCL [Concomitant]
  6. CALCIUM [Concomitant]
  7. MULTI-VITAMIN [Concomitant]
  8. ASPIRIN [Concomitant]
  9. PREMARIN [Concomitant]

REACTIONS (1)
  - CONVULSION [None]
